FAERS Safety Report 16363941 (Version 1)
Quarter: 2019Q2

REPORT INFORMATION
  Report Type: Spontaneous
  Country: DE (occurrence: DE)
  Receive Date: 20190528
  Receipt Date: 20190528
  Transmission Date: 20190711
  Serious: Yes (Hospitalization, Other)
  Sender: FDA-Public Use
  Company Number: DE-MYLANLABS-2019M1049526

PATIENT
  Age: 27 Year
  Sex: Female
  Weight: 95 kg

DRUGS (1)
  1. LEPONEX [Suspect]
     Active Substance: CLOZAPINE
     Indication: SCHIZOPHRENIA
     Dosage: 5000 MG, ONCE/SINGLE
     Route: 048
     Dates: start: 20020110, end: 20020110

REACTIONS (7)
  - Intentional overdose [Recovered/Resolved]
  - Sedation [Recovered/Resolved]
  - Poisoning [Recovered/Resolved]
  - Loss of consciousness [Recovered/Resolved]
  - Suicide attempt [Recovered/Resolved]
  - Generalised tonic-clonic seizure [Recovered/Resolved]
  - Condition aggravated [Recovered/Resolved]

NARRATIVE: CASE EVENT DATE: 20020110
